FAERS Safety Report 5760125-5 (Version None)
Quarter: 2008Q2

REPORT INFORMATION
  Report Type: 
  Country: None (occurrence: None)
  Receive Date: 20080605
  Receipt Date: 20080512
  Transmission Date: 20081010
  Serious: No
  Sender: FDA-Public Use
  Company Number: US-BOEHRINGER INGELHEIM GMBH, GERMANY-2008-BP-07445BP

PATIENT
  Age: 60 Year
  Sex: Male

DRUGS (6)
  1. FLOMAX [Suspect]
     Indication: PROSTATOMEGALY
     Route: 048
     Dates: start: 20070501
  2. LISINOPRIL [Concomitant]
     Indication: HYPERTENSION
  3. METOPROLOL TARTRATE [Concomitant]
     Indication: HYPERTENSION
  4. LEVOTHYROXINE SODIUM [Concomitant]
     Indication: BASEDOW'S DISEASE
  5. PROBENECID [Concomitant]
     Indication: GOUT
  6. UNSPECIFIED EYE DROPS [Concomitant]
     Indication: PIGMENTARY GLAUCOMA

REACTIONS (1)
  - URINE FLOW DECREASED [None]
